FAERS Safety Report 19280319 (Version 1)
Quarter: 2021Q2

REPORT INFORMATION
  Report Type: Other
  Country: FR (occurrence: FR)
  Receive Date: 20210520
  Receipt Date: 20210520
  Transmission Date: 20210717
  Serious: Yes (Other)
  Sender: FDA-Public Use
  Company Number: FR-ROCHE-2581281

PATIENT
  Age: 55 Year
  Sex: Male
  Weight: 88 kg

DRUGS (6)
  1. VALIUM [Concomitant]
     Active Substance: DIAZEPAM
  2. MEDROL [Concomitant]
     Active Substance: METHYLPREDNISOLONE
  3. ACTISKENAN [Concomitant]
     Active Substance: MORPHINE SULFATE
  4. PRIMPERAN [Concomitant]
     Active Substance: METOCLOPRAMIDE HYDROCHLORIDE
  5. DOLIPRANE [Concomitant]
     Active Substance: ACETAMINOPHEN
  6. ATEZOLIZUMAB. [Suspect]
     Active Substance: ATEZOLIZUMAB
     Indication: NON-SMALL CELL LUNG CANCER METASTATIC
     Dosage: NEXT ATEZOLIZUMAB INFUSION WAS ADMINISTERED ON: 19/SEP/2019, 10/OCT/2019, 31/OCT/2019, 21/NOV/2019,
     Route: 041
     Dates: start: 20190829

REACTIONS (1)
  - Hepatic cytolysis [Not Recovered/Not Resolved]

NARRATIVE: CASE EVENT DATE: 20191230
